FAERS Safety Report 17590169 (Version 1)
Quarter: 2020Q1

REPORT INFORMATION
  Report Type: Report from Study
  Country: CO (occurrence: CO)
  Receive Date: 20200327
  Receipt Date: 20200327
  Transmission Date: 20200409
  Serious: Yes (Death, Hospitalization)
  Sender: FDA-Public Use
  Company Number: CO-ROCHE-2527180

PATIENT
  Sex: Female

DRUGS (1)
  1. TOCILIZUMAB. [Suspect]
     Active Substance: TOCILIZUMAB
     Indication: PRODUCT USED FOR UNKNOWN INDICATION
     Route: 065

REACTIONS (20)
  - Herpes virus infection [Fatal]
  - Vomiting [Unknown]
  - Tremor [Unknown]
  - Influenza [Fatal]
  - Immunodeficiency [Unknown]
  - Chills [Unknown]
  - Kidney infection [Fatal]
  - Epilepsy [Unknown]
  - Asthenia [Unknown]
  - Headache [Unknown]
  - Parkinson^s disease [Unknown]
  - Malaise [Unknown]
  - Osteoporosis [Unknown]
  - Bone pain [Unknown]
  - Pyrexia [Unknown]
  - Diverticulitis [Fatal]
  - Platelet count decreased [Unknown]
  - Peripheral swelling [Fatal]
  - Gastric disorder [Fatal]
  - Discomfort [Unknown]
